FAERS Safety Report 5546190-9 (Version None)
Quarter: 2007Q4

REPORT INFORMATION
  Report Type: 
  Country: None (occurrence: None)
  Receive Date: 20071211
  Receipt Date: 20071130
  Transmission Date: 20080405
  Serious: Yes (Hospitalization)
  Sender: FDA-Public Use
  Company Number: IE-PURDUE-GBR_2006_0002489

PATIENT
  Sex: Female

DRUGS (9)
  1. MST CONTINUS TABLETS [Suspect]
     Indication: DRUG USE FOR UNKNOWN INDICATION
     Dosage: 100 MG, UNK
     Route: 048
  2. MST CONTINUS TABLETS [Suspect]
     Dosage: 10 MG, UNK
     Route: 048
  3. MST CONTINUS TABLETS [Suspect]
     Dosage: 30 MG, UNK
     Route: 048
  4. ZOTON [Concomitant]
     Indication: DRUG USE FOR UNKNOWN INDICATION
     Route: 065
  5. LAMICTAL [Concomitant]
     Indication: DRUG USE FOR UNKNOWN INDICATION
     Route: 065
  6. PRAVASTATIN [Concomitant]
     Indication: DRUG USE FOR UNKNOWN INDICATION
     Route: 065
  7. FUROSEMIDE [Concomitant]
     Indication: DRUG USE FOR UNKNOWN INDICATION
     Route: 065
  8. ZISPIN [Concomitant]
     Indication: DRUG USE FOR UNKNOWN INDICATION
     Dosage: 15 MG, UNK
     Route: 065
  9. SINEMET [Concomitant]
     Indication: DRUG USE FOR UNKNOWN INDICATION
     Dosage: 62.5 UNK, UNK
     Route: 065

REACTIONS (4)
  - ACCIDENTAL EXPOSURE [None]
  - CONSCIOUSNESS FLUCTUATING [None]
  - DYSPNOEA [None]
  - SOMNOLENCE [None]
